FAERS Safety Report 8841440 (Version 2)
Quarter: 2012Q4

REPORT INFORMATION
  Report Type: 
  Country: IT (occurrence: IT)
  Receive Date: 20121016
  Receipt Date: 20121105
  Transmission Date: 20130627
  Serious: Yes (Hospitalization)
  Sender: FDA-Public Use
  Company Number: IT-BRISTOL-MYERS SQUIBB COMPANY-17023490

PATIENT
  Age: 61 Year
  Sex: Male

DRUGS (7)
  1. ESKIM [Concomitant]
     Indication: DYSLIPIDAEMIA
     Dosage: 1df=capsules 50mg^
  2. ESOPRAL [Concomitant]
     Indication: PROPHYLAXIS AGAINST GASTROINTESTINAL ULCER
     Dosage: 1df=^tab 20mg^
  3. NORVASC [Concomitant]
     Indication: HYPERTENSION
     Dosage: 1df=^tab 5mg^
  4. KCL RETARD [Concomitant]
     Indication: HYPOKALAEMIA
     Dosage: 1df=^tab 600mg^
  5. COUMADIN TABS 5 MG [Suspect]
     Indication: ATRIAL FIBRILLATION
     Dates: start: 20100101, end: 20120901
  6. SIMVASTATIN [Concomitant]
     Indication: DYSLIPIDAEMIA
  7. LOSARTAN [Concomitant]
     Indication: HYPERTENSION
     Dosage: 1df=^tab 50mg^

REACTIONS (2)
  - Anaemia [Unknown]
  - Melaena [Recovering/Resolving]
